FAERS Safety Report 4617902-3 (Version None)
Quarter: 2005Q1

REPORT INFORMATION
  Report Type: 
  Country: None (occurrence: None)
  Receive Date: 20050322
  Receipt Date: 20050309
  Transmission Date: 20050727
  Serious: Yes (Hospitalization)
  Sender: FDA-Public Use
  Company Number: MK200503-0144-1

PATIENT
  Age: 24 Year
  Sex: Male

DRUGS (4)
  1. PAMELOR [Suspect]
     Indication: DEPRESSION
     Dosage: 75-150MG, QD, PO
     Route: 048
     Dates: start: 20041201, end: 20050307
  2. CARBOLITHIUM [Concomitant]
  3. SERTRALINE HYDROCHLORIDE [Concomitant]
  4. ZOLPIDEM TARTRATE [Concomitant]

REACTIONS (12)
  - ANXIETY [None]
  - BRADYPHRENIA [None]
  - CONFUSIONAL STATE [None]
  - CONVULSION [None]
  - DISORIENTATION [None]
  - HYPOMANIA [None]
  - HYPOTENSION [None]
  - MALAISE [None]
  - PANIC DISORDER [None]
  - SOMNOLENCE [None]
  - SYNCOPE [None]
  - TREMOR [None]
